FAERS Safety Report 11800132 (Version 1)
Quarter: 2015Q4

REPORT INFORMATION
  Report Type: Spontaneous
  Country: ES (occurrence: ES)
  Receive Date: 20151203
  Receipt Date: 20151203
  Transmission Date: 20160305
  Serious: Yes (Other)
  Sender: FDA-Public Use
  Company Number: ES-ALLERGAN-1524932US

PATIENT
  Age: 80 Year
  Sex: Male

DRUGS (1)
  1. OZURDEX [Suspect]
     Active Substance: DEXAMETHASONE
     Indication: PRODUCT USED FOR UNKNOWN INDICATION
     Dosage: 0.7 MG, SINGLE
     Route: 031
     Dates: start: 2015, end: 2015

REACTIONS (3)
  - Device dislocation [Unknown]
  - Medication error [Unknown]
  - Eye inflammation [Unknown]

NARRATIVE: CASE EVENT DATE: 201510
